FAERS Safety Report 9799708 (Version 2)
Quarter: 2014Q1

REPORT INFORMATION
  Report Type: Spontaneous
  Country: US (occurrence: US)
  Receive Date: 20140106
  Receipt Date: 20140106
  Transmission Date: 20141002
  Serious: No
  Sender: FDA-Public Use
  Company Number: US-GILEAD-2010-0031884

PATIENT
  Age: 62 Year
  Sex: Female
  Weight: 49.89 kg

DRUGS (15)
  1. LETAIRIS [Suspect]
     Indication: PULMONARY ARTERIAL HYPERTENSION
     Route: 048
     Dates: start: 20100827
  2. FLOLAN [Concomitant]
  3. REVATIO [Concomitant]
  4. PROPRANOLOL [Concomitant]
  5. LASIX [Concomitant]
  6. XOPENEX HF [Concomitant]
  7. NEXIUM [Concomitant]
  8. ZOFRAN [Concomitant]
  9. TRAMADOL [Concomitant]
  10. SPIRONOLACTONE [Concomitant]
  11. BACITRACIN/NEOMYCIN/POLY [Concomitant]
  12. ACYCLOVIR [Concomitant]
  13. ACTONEL [Concomitant]
  14. MULTIVITAMIN [Concomitant]
  15. CALCIUM [Concomitant]

REACTIONS (4)
  - Nausea [Unknown]
  - Vomiting [Unknown]
  - Headache [Unknown]
  - Rash [Unknown]
